FAERS Safety Report 23541662 (Version 1)
Quarter: 2024Q1

REPORT INFORMATION
  Report Type: Report from Study
  Country: US (occurrence: US)
  Receive Date: 20240219
  Receipt Date: 20240219
  Transmission Date: 20240410
  Serious: Yes (Other)
  Sender: FDA-Public Use
  Company Number: US-ABBVIE-5645069

PATIENT
  Age: 18 Year
  Sex: Male

DRUGS (4)
  1. SKYRIZI [Suspect]
     Active Substance: RISANKIZUMAB-RZAA
     Indication: Crohn^s disease
     Dosage: FORM STRENGTH: 2.4 ML?FREQUENCY TEXT: WEEK 12
     Route: 058
     Dates: start: 20240121
  2. SKYRIZI [Suspect]
     Active Substance: RISANKIZUMAB-RZAA
     Indication: Crohn^s disease
     Dosage: WEEK 0?FORM STRENGTH: 600 MG
     Route: 042
     Dates: start: 202310, end: 202310
  3. SKYRIZI [Suspect]
     Active Substance: RISANKIZUMAB-RZAA
     Indication: Crohn^s disease
     Dosage: WEEK  8?FORM STRENGTH: 600 MG
     Route: 042
     Dates: start: 20231219, end: 20231219
  4. SKYRIZI [Suspect]
     Active Substance: RISANKIZUMAB-RZAA
     Indication: Crohn^s disease
     Dosage: WEEK 4?FORM STRENGTH: 600 MG
     Route: 042
     Dates: start: 202311, end: 202311

REACTIONS (2)
  - Colectomy [Recovering/Resolving]
  - Stoma creation [Recovering/Resolving]

NARRATIVE: CASE EVENT DATE: 20230831
